FAERS Safety Report 16094414 (Version 1)
Quarter: 2019Q2

REPORT INFORMATION
  Report Type: Spontaneous
  Country: US (occurrence: US)
  Receive Date: 20190319
  Receipt Date: 20190319
  Transmission Date: 20190711
  Serious: Yes (Hospitalization)
  Sender: FDA-Public Use
  Company Number: None

PATIENT
  Age: 58 Year
  Sex: Male

DRUGS (6)
  1. LISINIPRIL [Concomitant]
     Active Substance: LISINOPRIL
  2. METOPROLOL. [Concomitant]
     Active Substance: METOPROLOL
  3. BUPROPION. [Concomitant]
     Active Substance: BUPROPION
  4. ENBREL [Suspect]
     Active Substance: ETANERCEPT
     Indication: RHEUMATOID ARTHRITIS
     Dosage: ?          OTHER FREQUENCY:QW;?
     Route: 058
     Dates: start: 20180905
  5. ATORVASTATIN [Concomitant]
     Active Substance: ATORVASTATIN
  6. TOBRA/DEXAME SUS [Concomitant]

REACTIONS (2)
  - Norovirus test positive [None]
  - Sinusitis [None]

NARRATIVE: CASE EVENT DATE: 20190219
